FAERS Safety Report 8055950-4 (Version None)
Quarter: 2011Q4

REPORT INFORMATION
  Report Type: 
  Country: None (occurrence: None)
  Receive Date: 20111216
  Receipt Date: 20110127
  Transmission Date: 20120403
  Serious: Yes (Other)
  Sender: FDA-Public Use
  Company Number: 261424USA

PATIENT
  Age: 24 Year
  Sex: Female
  Weight: 92.9874 kg

DRUGS (2)
  1. LEVOTHYROXINE SODIUM [Concomitant]
  2. PARAGARD T 380A [Suspect]
     Indication: CONTRACEPTION
     Dosage: I.U.
     Dates: start: 20100729, end: 20101213

REACTIONS (3)
  - DYSFUNCTIONAL UTERINE BLEEDING [None]
  - DEVICE EXPULSION [None]
  - MENOMETRORRHAGIA [None]
